FAERS Safety Report 23419426 (Version 7)
Quarter: 2024Q3

REPORT INFORMATION
  Report Type: Report from Study
  Country: CA (occurrence: CA)
  Receive Date: 20240118
  Receipt Date: 20240918
  Transmission Date: 20241017
  Serious: Yes (Hospitalization, Other)
  Sender: JOHNSON AND JOHNSON
  Company Number: CA-JNJFOC-20231148509

PATIENT
  Age: 63 Year
  Sex: Male

DRUGS (1)
  1. SIMPONI [Suspect]
     Active Substance: GOLIMUMAB
     Indication: Product used for unknown indication
     Route: 058

REACTIONS (6)
  - Infection [Recovering/Resolving]
  - Spinal fusion surgery [Recovering/Resolving]
  - Feeling cold [Unknown]
  - Muscle atrophy [Recovering/Resolving]
  - Pain [Not Recovered/Not Resolved]
  - Drug ineffective [Unknown]
